FAERS Safety Report 9988303 (Version 2)
Quarter: 2014Q1

REPORT INFORMATION
  Report Type: Report from Study
  Country: CL (occurrence: CL)
  Receive Date: 20140310
  Receipt Date: 20140326
  Transmission Date: 20141002
  Serious: Yes (Hospitalization, Other)
  Sender: FDA-Public Use
  Company Number: CL-ROCHE-1361165

PATIENT
  Age: 56 Year
  Sex: Male

DRUGS (1)
  1. XELODA [Suspect]
     Indication: RECTAL CANCER
     Dosage: 14-DAY-CYCLE
     Route: 048
     Dates: start: 20140210, end: 20140219

REACTIONS (2)
  - Intestinal obstruction [Recovered/Resolved]
  - Gastrointestinal stoma complication [Not Recovered/Not Resolved]
